FAERS Safety Report 10723889 (Version 1)
Quarter: 2015Q1

REPORT INFORMATION
  Report Type: Spontaneous
  Country: US (occurrence: None)
  Receive Date: 20150115
  Receipt Date: 20150115
  Transmission Date: 20150721
  Serious: Yes (Other)
  Sender: FDA-Public Use
  Company Number: CIO15000329

PATIENT
  Age: 52 Year
  Sex: Female

DRUGS (1)
  1. CREST 3D WHITE [Suspect]
     Active Substance: SODIUM FLUORIDE
     Indication: DENTAL CARE
     Dosage: INTRAORAL

REACTIONS (4)
  - Bone loss [None]
  - Toothache [None]
  - Oral pain [None]
  - Sensitivity of teeth [None]

NARRATIVE: CASE EVENT DATE: 2014
